FAERS Safety Report 12796073 (Version 1)
Quarter: 2016Q3

REPORT INFORMATION
  Report Type: Spontaneous
  Country: None (occurrence: US)
  Receive Date: 20160929
  Receipt Date: 20160929
  Transmission Date: 20161109
  Serious: Yes (Hospitalization)
  Sender: FDA-Public Use
  Company Number: US-WARNER CHILCOTT, LLC-1057853

PATIENT
  Sex: Female
  Weight: 68.18 kg

DRUGS (10)
  1. ESTRACE [Suspect]
     Active Substance: ESTRADIOL
     Indication: PRODUCT USED FOR UNKNOWN INDICATION
     Route: 067
  2. BUPROPION. [Concomitant]
     Active Substance: BUPROPION
  3. CITRACAL [Concomitant]
     Active Substance: CALCIUM CITRATE
  4. GABAPENTIN. [Concomitant]
     Active Substance: GABAPENTIN
  5. MONTELUKAST SODIUM. [Concomitant]
     Active Substance: MONTELUKAST SODIUM
  6. ALLEGRA [Concomitant]
     Active Substance: FEXOFENADINE HYDROCHLORIDE
  7. ASPIRIN. [Concomitant]
     Active Substance: ASPIRIN
  8. CITALOPRAM [Concomitant]
     Active Substance: CITALOPRAM HYDROBROMIDE
  9. CRANBERRY. [Concomitant]
     Active Substance: CRANBERRY
  10. VITAMIN D [Concomitant]
     Active Substance: CHOLECALCIFEROL

REACTIONS (5)
  - Hospitalisation [None]
  - Intentional product misuse [None]
  - Application site discharge [None]
  - Drug effect decreased [None]
  - Urine abnormality [None]
